FAERS Safety Report 10230748 (Version 2)
Quarter: 2014Q3

REPORT INFORMATION
  Report Type: Report from Study
  Country: VE (occurrence: VE)
  Receive Date: 20140611
  Receipt Date: 20140830
  Transmission Date: 20150326
  Serious: Yes (Hospitalization)
  Sender: FDA-Public Use
  Company Number: VE-ABBVIE-14P-178-1245201-00

PATIENT
  Age: 71 Year
  Sex: Female
  Weight: 61 kg

DRUGS (5)
  1. HUMIRA [Suspect]
     Active Substance: ADALIMUMAB
     Indication: RHEUMATOID ARTHRITIS
     Route: 058
     Dates: start: 2007, end: 201310
  2. TRANGOREX [Concomitant]
     Active Substance: AMIODARONE HYDROCHLORIDE
     Indication: TACHYCARDIA
     Route: 048
  3. IDENA [Concomitant]
     Indication: OSTEOPOROSIS
     Route: 048
     Dates: start: 2014
  4. METHOTREXATE [Suspect]
     Active Substance: METHOTREXATE
     Indication: OSTEOPOROSIS
     Route: 048
     Dates: start: 2007
  5. METICORTEN [Concomitant]
     Active Substance: PREDNISONE
     Indication: RHEUMATOID ARTHRITIS
     Route: 048
     Dates: start: 201312

REACTIONS (7)
  - Influenza [Recovered/Resolved]
  - Pulmonary fibrosis [Unknown]
  - Pulmonary mycosis [Recovering/Resolving]
  - Pulmonary haemorrhage [Recovered/Resolved]
  - Epistaxis [Recovered/Resolved]
  - Respiratory tract infection bacterial [Recovering/Resolving]
  - Cough [Recovering/Resolving]

NARRATIVE: CASE EVENT DATE: 201312
